FAERS Safety Report 20871077 (Version 2)
Quarter: 2022Q2

REPORT INFORMATION
  Report Type: Spontaneous
  Country: AU (occurrence: AU)
  Receive Date: 20220525
  Receipt Date: 20220621
  Transmission Date: 20220720
  Serious: Yes (Other)
  Sender: FDA-Public Use
  Company Number: AU-BoehringerIngelheim-2022-BI-172271

PATIENT
  Age: 16 Year
  Sex: Female

DRUGS (1)
  1. CLONIDINE [Suspect]
     Active Substance: CLONIDINE
     Indication: Product used for unknown indication
     Route: 048
     Dates: start: 20210812

REACTIONS (4)
  - Bradycardia [Unknown]
  - Syncope [Unknown]
  - Somnolence [Unknown]
  - Accidental exposure to product [Unknown]
